FAERS Safety Report 7901836-2 (Version None)
Quarter: 2011Q4

REPORT INFORMATION
  Report Type: 
  Country: None (occurrence: None)
  Receive Date: 20111108
  Receipt Date: 20111030
  Transmission Date: 20120403
  Serious: Yes (Hospitalization)
  Sender: FDA-Public Use
  Company Number: NZ-B.I. PHARMACEUTICALS,INC./RIDGEFIELD-2011-EU-00113AU

PATIENT
  Sex: Male

DRUGS (4)
  1. DABIGATRAN [Suspect]
     Indication: ATRIAL FIBRILLATION
     Dosage: 220 MG
     Route: 048
     Dates: start: 20110720, end: 20110728
  2. ATENOLOL [Suspect]
     Indication: HYPERTENSION
     Route: 048
  3. INFLUENZA VIRUS VACCINE INACT. [Concomitant]
     Indication: INFLUENZA IMMUNISATION
     Dosage: 0.5 ML
     Route: 030
     Dates: start: 20110720, end: 20110720
  4. DOXAZOSIN MESYLATE [Concomitant]
     Dosage: 16 MG
     Route: 048

REACTIONS (3)
  - BRADYCARDIA [None]
  - DRUG INTERACTION [None]
  - HYPONATRAEMIA [None]
